FAERS Safety Report 8985923 (Version 1)
Quarter: 2012Q4

REPORT INFORMATION
  Report Type: 
  Country: US (occurrence: US)
  Receive Date: 20121226
  Receipt Date: 20121226
  Transmission Date: 20130627
  Serious: No
  Sender: FDA-Public Use
  Company Number: US-ABBOTT-12P-163-0916600-00

PATIENT
  Sex: Male
  Weight: 62.65 kg

DRUGS (1)
  1. LUPRON DEPOT 45 MG [Suspect]
     Indication: PROSTATE CANCER
     Dates: start: 20111213

REACTIONS (4)
  - Hot flush [Recovered/Resolved]
  - Hot flush [Recovered/Resolved]
  - Oedema peripheral [Recovering/Resolving]
  - Oedema peripheral [Unknown]
